FAERS Safety Report 17336863 (Version 23)
Quarter: 2022Q3

REPORT INFORMATION
  Report Type: Spontaneous
  Country: CA (occurrence: CA)
  Receive Date: 20200129
  Receipt Date: 20220826
  Transmission Date: 20221026
  Serious: Yes (Hospitalization, Other)
  Sender: FDA-Public Use
  Company Number: CA-CELLTRION INC.-2019CA021525

PATIENT

DRUGS (31)
  1. INFLECTRA [Suspect]
     Active Substance: INFLIXIMAB-DYYB
     Indication: Colitis ulcerative
     Dosage: 450 MG, 0, 2, 6 THEN EVERY 8 WEEKS / [INDUCTION WEEK 0]
     Route: 042
     Dates: start: 20190426, end: 20190426
  2. INFLECTRA [Suspect]
     Active Substance: INFLIXIMAB-DYYB
     Dosage: 450 MG, 0, 2, 6 THEN EVERY 8 WEEKS (INDUCTION WEEK 2)
     Route: 042
     Dates: start: 20190509, end: 20190509
  3. INFLECTRA [Suspect]
     Active Substance: INFLIXIMAB-DYYB
     Dosage: 450 MG, 0, 2, 6 THEN EVERY 8 WEEKS (INDUCTION WEEK 6)
     Route: 042
     Dates: start: 20190606, end: 20190606
  4. INFLECTRA [Suspect]
     Active Substance: INFLIXIMAB-DYYB
     Dosage: 450 MG, EVERY 4 WEEKS
     Route: 042
     Dates: start: 20190704
  5. INFLECTRA [Suspect]
     Active Substance: INFLIXIMAB-DYYB
     Dosage: 450 MG, EVERY 4 WEEKS
     Route: 042
     Dates: start: 20190704, end: 20200826
  6. INFLECTRA [Suspect]
     Active Substance: INFLIXIMAB-DYYB
     Dosage: 450 MG, EVERY 4 WEEKS
     Route: 042
     Dates: start: 20190801
  7. INFLECTRA [Suspect]
     Active Substance: INFLIXIMAB-DYYB
     Dosage: 450 MG, EVERY 4 WEEKS
     Route: 042
     Dates: start: 20190829
  8. INFLECTRA [Suspect]
     Active Substance: INFLIXIMAB-DYYB
     Dosage: 450 MG, EVERY 4 WEEKS
     Route: 042
     Dates: start: 20190926, end: 20190926
  9. INFLECTRA [Suspect]
     Active Substance: INFLIXIMAB-DYYB
     Dosage: 450 MG, EVERY 4 WEEKS
     Route: 042
     Dates: start: 20191024, end: 20191024
  10. INFLECTRA [Suspect]
     Active Substance: INFLIXIMAB-DYYB
     Dosage: 450 MG, EVERY 4 WEEKS
     Route: 042
     Dates: start: 20191024, end: 20191024
  11. INFLECTRA [Suspect]
     Active Substance: INFLIXIMAB-DYYB
     Dosage: 450 MG, EVERY 4 WEEKS
     Route: 042
     Dates: start: 20191121
  12. INFLECTRA [Suspect]
     Active Substance: INFLIXIMAB-DYYB
     Dosage: 450 MG, EVERY 4 WEEKS
     Route: 042
     Dates: start: 20191219, end: 20191219
  13. INFLECTRA [Suspect]
     Active Substance: INFLIXIMAB-DYYB
     Dosage: 450 MG, EVERY 4 WEEKS
     Route: 042
     Dates: start: 20200116, end: 20200116
  14. INFLECTRA [Suspect]
     Active Substance: INFLIXIMAB-DYYB
     Dosage: 450 MG, EVERY 4 WEEKS
     Route: 042
     Dates: start: 20200213, end: 20200213
  15. INFLECTRA [Suspect]
     Active Substance: INFLIXIMAB-DYYB
     Dosage: 450 MG, EVERY 4 WEEKS
     Route: 042
     Dates: start: 20200312, end: 20200312
  16. INFLECTRA [Suspect]
     Active Substance: INFLIXIMAB-DYYB
     Dosage: 450 MG, EVERY 4 WEEKS
     Route: 042
     Dates: start: 20200604
  17. INFLECTRA [Suspect]
     Active Substance: INFLIXIMAB-DYYB
     Dosage: 450 MG, EVERY 4 WEEKS
     Route: 042
     Dates: start: 20200702
  18. INFLECTRA [Suspect]
     Active Substance: INFLIXIMAB-DYYB
     Dosage: 450 MG, EVERY 4 WEEKS
     Route: 042
     Dates: start: 20200729, end: 20200729
  19. INFLECTRA [Suspect]
     Active Substance: INFLIXIMAB-DYYB
     Dosage: 450 MG, EVERY 4 WEEKS
     Route: 042
     Dates: start: 20200826
  20. INFLECTRA [Suspect]
     Active Substance: INFLIXIMAB-DYYB
     Dosage: 500 MG, EVERY 4 WEEKS
     Route: 042
     Dates: start: 20200923
  21. INFLECTRA [Suspect]
     Active Substance: INFLIXIMAB-DYYB
     Dosage: 500 MG, EVERY 4 WEEKS
     Route: 042
     Dates: start: 20201023
  22. INFLECTRA [Suspect]
     Active Substance: INFLIXIMAB-DYYB
     Dosage: 500 MG, EVERY 4 WEEKS
     Route: 042
     Dates: start: 20201116
  23. INFLECTRA [Suspect]
     Active Substance: INFLIXIMAB-DYYB
     Dosage: 500 MG, EVERY 4 WEEKS
     Route: 042
     Dates: start: 20210112, end: 20210112
  24. INFLECTRA [Suspect]
     Active Substance: INFLIXIMAB-DYYB
     Dosage: 500 MG, EVERY 4 WEEKS
     Route: 042
     Dates: start: 20210301
  25. CALCIUM [Concomitant]
     Active Substance: CALCIUM
     Dosage: 1 DF UNK DOSE
  26. ENOXAPARIN SODIUM [Concomitant]
     Active Substance: ENOXAPARIN SODIUM
     Dosage: 1 DF UNK DOSE
  27. CLONAZEPAM [Concomitant]
     Active Substance: CLONAZEPAM
     Dosage: 1 DF UNK DOSE
  28. CORTISONE [Concomitant]
     Active Substance: CORTISONE
     Dosage: 1 DF UNK DOSE
     Dates: start: 20190325
  29. RITALIN [Concomitant]
     Active Substance: METHYLPHENIDATE HYDROCHLORIDE
     Dosage: 1 DF UNK DOSE
     Dates: start: 20190325
  30. SEROQUEL [Concomitant]
     Active Substance: QUETIAPINE FUMARATE
     Dosage: 1 DF UNK DOSE
  31. VITAMIN D NOS [Concomitant]
     Active Substance: VITAMIN D NOS
     Dosage: 1 DF UNK DOSE

REACTIONS (36)
  - Gastrointestinal disorder [Unknown]
  - Condition aggravated [Unknown]
  - Bacterial infection [Unknown]
  - Therapeutic product effect incomplete [Unknown]
  - Off label use [Unknown]
  - Off label use [Unknown]
  - Intentional product use issue [Unknown]
  - Inappropriate schedule of product administration [Unknown]
  - Nasopharyngitis [Not Recovered/Not Resolved]
  - Rhinorrhoea [Unknown]
  - Cough [Recovering/Resolving]
  - Feeling hot [Unknown]
  - Hyperhidrosis [Unknown]
  - Blood pressure increased [Unknown]
  - Heart rate increased [Unknown]
  - Abnormal behaviour [Not Recovered/Not Resolved]
  - Logorrhoea [Not Recovered/Not Resolved]
  - Weight decreased [Not Recovered/Not Resolved]
  - Weight increased [Unknown]
  - Headache [Unknown]
  - Nasal congestion [Recovered/Resolved]
  - Fatigue [Unknown]
  - Pollakiuria [Unknown]
  - Chromaturia [Unknown]
  - Insomnia [Unknown]
  - Stress [Unknown]
  - Faecal calprotectin increased [Unknown]
  - Feeling abnormal [Not Recovered/Not Resolved]
  - Vomiting [Not Recovered/Not Resolved]
  - Gastroenteritis [Not Recovered/Not Resolved]
  - Fatigue [Recovering/Resolving]
  - Oropharyngeal pain [Recovered/Resolved]
  - Pyrexia [Recovered/Resolved]
  - Diarrhoea [Recovering/Resolving]
  - Illness [Unknown]
  - Suspected COVID-19 [Unknown]

NARRATIVE: CASE EVENT DATE: 20190507
